FAERS Safety Report 10616865 (Version 11)
Quarter: 2022Q3

REPORT INFORMATION
  Report Type: Report from Study
  Country: GT (occurrence: GT)
  Receive Date: 20141201
  Receipt Date: 20220902
  Transmission Date: 20221027
  Serious: Yes (Other)
  Sender: FDA-Public Use
  Company Number: PHHY2014GT156509

PATIENT
  Age: 57 Year
  Sex: Female
  Weight: 54.422 kg

DRUGS (12)
  1. GILENYA [Suspect]
     Active Substance: FINGOLIMOD HYDROCHLORIDE
     Indication: Multiple sclerosis
     Dosage: 0.5 MG, QD
     Route: 048
     Dates: start: 2004
  2. GILENYA [Suspect]
     Active Substance: FINGOLIMOD HYDROCHLORIDE
     Indication: Secondary progressive multiple sclerosis
     Dosage: 0.5 MG, QD
     Route: 048
     Dates: start: 201110
  3. FINGOLIMOD [Suspect]
     Active Substance: FINGOLIMOD
     Indication: Multiple sclerosis
     Dosage: 0.5 MG, QD
     Route: 048
     Dates: start: 20140903
  4. TEGRETOL [Suspect]
     Active Substance: CARBAMAZEPINE
     Indication: Product used for unknown indication
     Dosage: UNK
     Route: 065
  5. CLONAZEPAM [Concomitant]
     Active Substance: CLONAZEPAM
     Indication: Product used for unknown indication
     Dosage: 0.5 DF, QD
     Route: 065
  6. LYRICA [Concomitant]
     Active Substance: PREGABALIN
     Indication: Seizure
     Dosage: 1 DF, QD
     Route: 065
  7. ETHINYL ESTRADIOL\NORETHINDRONE ACETATE [Concomitant]
     Active Substance: ETHINYL ESTRADIOL\NORETHINDRONE ACETATE
     Indication: Product used for unknown indication
     Dosage: UNK
     Route: 065
  8. CONTROLIP (ETOFYLLINE CLOFIBRATE) [Concomitant]
     Indication: Blood cholesterol
     Dosage: 1 DF, QD
     Route: 065
  9. IBUPROFEN [Concomitant]
     Active Substance: IBUPROFEN
     Indication: Dysmenorrhoea
     Dosage: UNK
     Route: 065
  10. IBUPROFEN [Concomitant]
     Active Substance: IBUPROFEN
     Indication: Skin burning sensation
  11. VALPROATE SODIUM [Concomitant]
     Active Substance: VALPROATE SODIUM
     Indication: Seizure
     Dosage: 3 DF, QD
     Route: 065
  12. TIZANIDINE [Concomitant]
     Active Substance: TIZANIDINE
     Indication: Product used for unknown indication
     Dosage: UNK
     Route: 065

REACTIONS (29)
  - Syncope [Unknown]
  - Blood glucose decreased [Unknown]
  - Seizure [Unknown]
  - Feeling abnormal [Unknown]
  - Nervousness [Unknown]
  - Head discomfort [Unknown]
  - Anger [Unknown]
  - Dizziness [Unknown]
  - Tremor [Unknown]
  - Constipation [Unknown]
  - Malaise [Not Recovered/Not Resolved]
  - Gastrooesophageal sphincter insufficiency [Unknown]
  - Fall [Unknown]
  - Pain [Unknown]
  - Neck pain [Unknown]
  - Nausea [Unknown]
  - Nasopharyngitis [Unknown]
  - Headache [Unknown]
  - Diarrhoea [Unknown]
  - Pain in extremity [Unknown]
  - Gait disturbance [Unknown]
  - Muscle spasms [Unknown]
  - Insomnia [Unknown]
  - Muscle disorder [Unknown]
  - Swelling [Unknown]
  - Blunted affect [Unknown]
  - Hypoaesthesia [Unknown]
  - Tendon pain [Unknown]
  - Product use in unapproved indication [Unknown]

NARRATIVE: CASE EVENT DATE: 20141121
